FAERS Safety Report 19609216 (Version 1)
Quarter: 2021Q3

REPORT INFORMATION
  Report Type: Spontaneous
  Country: US (occurrence: US)
  Receive Date: 20210725
  Receipt Date: 20210725
  Transmission Date: 20211014
  Serious: Yes (Other)
  Sender: FDA-Public Use
  Company Number: None

PATIENT
  Age: 65 Year
  Sex: Male
  Weight: 101.25 kg

DRUGS (22)
  1. COLOSTRUM [Concomitant]
     Active Substance: DIETARY SUPPLEMENT
  2. PROBIOTIC [Concomitant]
     Active Substance: PROBIOTICS NOS
  3. FAMOTIDINE (PEPSID REPLACED RATINIDINE) [Concomitant]
  4. PANTOPRAZOLE [Concomitant]
     Active Substance: PANTOPRAZOLE
  5. ALBUTEROL. [Concomitant]
     Active Substance: ALBUTEROL
  6. MONTELUKAST SODIUM. [Concomitant]
     Active Substance: MONTELUKAST SODIUM
  7. ZINC AM [Concomitant]
  8. MESALAMINE DELAYED RELEASE TABLETS USP, 1.2 GRAM TABLETS [Suspect]
     Active Substance: MESALAMINE
     Indication: COLITIS ULCERATIVE
     Dosage: ?          QUANTITY:2 TABLET(S);?
     Route: 048
     Dates: start: 20210701, end: 20210706
  9. LASIX [Concomitant]
     Active Substance: FUROSEMIDE
  10. HYPERSAL 3% [Concomitant]
  11. VITAMIN B12 [Concomitant]
     Active Substance: CYANOCOBALAMIN
  12. MULTIVITAMIN [Concomitant]
     Active Substance: VITAMINS
  13. ADVAIR HFA [Concomitant]
     Active Substance: FLUTICASONE PROPIONATE\SALMETEROL XINAFOATE
  14. BUDESONIDE. [Concomitant]
     Active Substance: BUDESONIDE
  15. MAGNESIUM [Concomitant]
     Active Substance: MAGNESIUM
  16. ATORVASTATIN (LIPITOR CHOLESTEROL) [Concomitant]
  17. FLOMAX PROSTATE [Concomitant]
  18. GUAFENISIN [Concomitant]
  19. FISH OIL [Concomitant]
     Active Substance: FISH OIL
  20. ASPIRIN. [Concomitant]
     Active Substance: ASPIRIN
  21. TAMSULOSIN [Concomitant]
     Active Substance: TAMSULOSIN
  22. NEBULIZER [Concomitant]
     Active Substance: DEVICE

REACTIONS (4)
  - Cough [None]
  - Pyrexia [None]
  - Lethargy [None]
  - Chills [None]

NARRATIVE: CASE EVENT DATE: 20210701
